FAERS Safety Report 9925979 (Version 1)
Quarter: 2014Q1

REPORT INFORMATION
  Report Type: Spontaneous
  Country: US (occurrence: US)
  Receive Date: 20140226
  Receipt Date: 20140226
  Transmission Date: 20141002
  Serious: No
  Sender: FDA-Public Use
  Company Number: US-BRACCO-010097

PATIENT
  Age: 40 Year
  Sex: Female

DRUGS (1)
  1. ISOVUE 370 [Suspect]
     Indication: COMPUTERISED TOMOGRAM HEAD
     Route: 042
     Dates: start: 20130920, end: 20130920

REACTIONS (5)
  - Amnesia [Recovering/Resolving]
  - Paraesthesia oral [Recovering/Resolving]
  - Loss of consciousness [Recovering/Resolving]
  - Hypoaesthesia [Recovering/Resolving]
  - Chest discomfort [Recovering/Resolving]
